FAERS Safety Report 14907543 (Version 1)
Quarter: 2018Q2

REPORT INFORMATION
  Report Type: Report from Study
  Country: US (occurrence: US)
  Receive Date: 20180517
  Receipt Date: 20180517
  Transmission Date: 20180711
  Serious: Yes (Other)
  Sender: FDA-Public Use
  Company Number: US-TEVA-2018-US-891988

PATIENT
  Sex: Female

DRUGS (1)
  1. COPAXONE [Suspect]
     Active Substance: GLATIRAMER ACETATE
     Indication: MULTIPLE SCLEROSIS
     Route: 058
     Dates: start: 20100614, end: 20161001

REACTIONS (5)
  - Lip swelling [Recovered/Resolved]
  - Hypersensitivity [Unknown]
  - Back pain [Recovered/Resolved]
  - Urticaria [Recovered/Resolved]
  - Anaphylactic shock [Recovered/Resolved]
